FAERS Safety Report 4595062-5 (Version None)
Quarter: 2005Q1

REPORT INFORMATION
  Report Type: 
  Country: None (occurrence: None)
  Receive Date: 20050223
  Receipt Date: 20050214
  Transmission Date: 20050727
  Serious: Yes (Disabling)
  Sender: FDA-Public Use
  Company Number: FRWYE423314FEB05

PATIENT
  Age: 71 Year
  Sex: Male

DRUGS (1)
  1. EFFEXOR XR [Suspect]
     Dosage: 37.5 MG 6X PER 1 DAY, ORAL
     Route: 048
     Dates: start: 20040608, end: 20050210

REACTIONS (1)
  - PARKINSONISM [None]
